FAERS Safety Report 16142963 (Version 1)
Quarter: 2019Q2

REPORT INFORMATION
  Report Type: Report from Study
  Country: US (occurrence: US)
  Receive Date: 20190401
  Receipt Date: 20190401
  Transmission Date: 20190711
  Serious: Yes (Hospitalization, Other)
  Sender: FDA-Public Use
  Company Number: US-GILEAD-2019-0399676

PATIENT
  Age: 44 Year
  Sex: Female

DRUGS (2)
  1. AZTREONAM LYSINE [Suspect]
     Active Substance: AZTREONAM LYSINE
     Indication: CYSTIC FIBROSIS
     Dosage: 75 MG, Q8H, CONTINUOUSLY WITHOUT A BREAK
     Route: 055
     Dates: start: 20140315
  2. TYLENOL [Concomitant]
     Active Substance: ACETAMINOPHEN

REACTIONS (2)
  - Off label use [Not Recovered/Not Resolved]
  - Lung infection [Unknown]

NARRATIVE: CASE EVENT DATE: 20190327
